FAERS Safety Report 5622887-7 (Version None)
Quarter: 2008Q1

REPORT INFORMATION
  Report Type: 
  Country: None (occurrence: None)
  Receive Date: 20080207
  Receipt Date: 20080207
  Transmission Date: 20080703
  Serious: No
  Sender: FDA-Public Use
  Company Number: None

PATIENT
  Age: 52 Year
  Sex: Male

DRUGS (8)
  1. OXACILLIN [Suspect]
     Dates: start: 20051115, end: 20051223
  2. NAPROXEN [Concomitant]
  3. NORVASC [Concomitant]
  4. PREVACID [Concomitant]
  5. LOPRESSOR [Concomitant]
  6. FENTANYL [Concomitant]
  7. SYNTHROID [Concomitant]
  8. DILAUDID [Concomitant]

REACTIONS (2)
  - ALANINE AMINOTRANSFERASE INCREASED [None]
  - LIVER INJURY [None]
